FAERS Safety Report 16426740 (Version 1)
Quarter: 2019Q2

REPORT INFORMATION
  Report Type: Spontaneous
  Country: US (occurrence: US)
  Receive Date: 20190613
  Receipt Date: 20190613
  Transmission Date: 20190711
  Serious: Yes (Hospitalization, Other)
  Sender: FDA-Public Use
  Company Number: US-SHIRE-US201918537

PATIENT
  Sex: Female
  Weight: 72 kg

DRUGS (1)
  1. GATTEX [Suspect]
     Active Substance: TEDUGLUTIDE\WATER
     Indication: PRODUCT USED FOR UNKNOWN INDICATION
     Dosage: 0.36 (UNIT UNKNOWN)
     Route: 065
     Dates: start: 20140211

REACTIONS (1)
  - Cholecystitis acute [Recovering/Resolving]
